FAERS Safety Report 13949212 (Version 4)
Quarter: 2018Q3

REPORT INFORMATION
  Report Type: Spontaneous
  Country: US (occurrence: US)
  Receive Date: 20170908
  Receipt Date: 20180911
  Transmission Date: 20181010
  Serious: No
  Sender: FDA-Public Use
  Company Number: US-JAZZ-2017-US-009967

PATIENT
  Age: 52 Year
  Sex: Female

DRUGS (32)
  1. XYREM [Suspect]
     Active Substance: SODIUM OXYBATE
     Dosage: 4.5G, BID
     Route: 048
     Dates: start: 201009, end: 201706
  2. BACITRACIN ZINC. [Concomitant]
     Active Substance: BACITRACIN ZINC
  3. DOXYCYCLINE HYCLATE. [Concomitant]
     Active Substance: DOXYCYCLINE HYCLATE
  4. PANTOPRAZOLE SODIUM. [Concomitant]
     Active Substance: PANTOPRAZOLE SODIUM
  5. XYREM [Suspect]
     Active Substance: SODIUM OXYBATE
     Dosage: 3 G, BID
     Route: 048
     Dates: start: 201706, end: 2017
  6. MUPIROCIN. [Concomitant]
     Active Substance: MUPIROCIN
  7. HYDROCORTISONE. [Concomitant]
     Active Substance: HYDROCORTISONE
  8. VITAMIN D3 [Concomitant]
     Active Substance: CHOLECALCIFEROL
  9. XYREM [Suspect]
     Active Substance: SODIUM OXYBATE
     Dosage: UNK (DECREASED DOSE)
     Route: 048
     Dates: start: 2017
  10. DEXILANT [Concomitant]
     Active Substance: DEXLANSOPRAZOLE
  11. CALCIUM ACETATE. [Concomitant]
     Active Substance: CALCIUM ACETATE
  12. TYLENOL EXTRA STRENGTH [Concomitant]
     Active Substance: ACETAMINOPHEN
  13. XYREM [Suspect]
     Active Substance: SODIUM OXYBATE
     Dosage: 4.5 G, BID
     Route: 048
     Dates: start: 2017, end: 2017
  14. SYNTHROID [Concomitant]
     Active Substance: LEVOTHYROXINE SODIUM
  15. XYREM [Suspect]
     Active Substance: SODIUM OXYBATE
     Indication: CATAPLEXY
     Dosage: DOSE ADJUSTMENT
     Route: 048
     Dates: start: 201008, end: 201009
  16. NEURONTIN [Concomitant]
     Active Substance: GABAPENTIN
  17. INDERAL [Concomitant]
     Active Substance: PROPRANOLOL HYDROCHLORIDE
  18. DICLOFENAC SODIUM. [Concomitant]
     Active Substance: DICLOFENAC SODIUM
  19. ZYRTEC [Concomitant]
     Active Substance: CETIRIZINE HYDROCHLORIDE
  20. ESTRACE [Concomitant]
     Active Substance: ESTRADIOL
  21. XYREM [Suspect]
     Active Substance: SODIUM OXYBATE
     Dosage: 3 G, BID
     Route: 048
  22. SUCRALFATE. [Concomitant]
     Active Substance: SUCRALFATE
  23. NORCO [Concomitant]
     Active Substance: ACETAMINOPHEN\HYDROCODONE BITARTRATE
  24. PSEUDOEPHEDRINE HYDROCHLORIDE. [Concomitant]
     Active Substance: PSEUDOEPHEDRINE HYDROCHLORIDE
  25. BENZONATATE. [Concomitant]
     Active Substance: BENZONATATE
  26. XYREM [Suspect]
     Active Substance: SODIUM OXYBATE
     Indication: NARCOLEPSY
     Dosage: 2.25G, BID
     Route: 048
     Dates: start: 201007, end: 201008
  27. CHONDROITIN SULFATE W/GLUCOSAMINE SULFATE [Concomitant]
  28. RESTASIS [Concomitant]
     Active Substance: CYCLOSPORINE
  29. EFFEXOR [Concomitant]
     Active Substance: VENLAFAXINE HYDROCHLORIDE
  30. KLONOPIN [Concomitant]
     Active Substance: CLONAZEPAM
  31. PENICILLIN VK [Concomitant]
     Active Substance: PENICILLIN V POTASSIUM
  32. NASONEX [Concomitant]
     Active Substance: MOMETASONE FUROATE

REACTIONS (12)
  - Asthenia [Not Recovered/Not Resolved]
  - Nausea [Unknown]
  - Thinking abnormal [Not Recovered/Not Resolved]
  - Fatigue [Unknown]
  - Feeding disorder [Not Recovered/Not Resolved]
  - Wrong technique in product usage process [Unknown]
  - Insomnia [Unknown]
  - Diarrhoea [Not Recovered/Not Resolved]
  - Stress at work [Unknown]
  - Disturbance in attention [Unknown]
  - Weight decreased [Recovering/Resolving]
  - Disability [Not Recovered/Not Resolved]

NARRATIVE: CASE EVENT DATE: 201706
